FAERS Safety Report 8767505 (Version 2)
Quarter: 2013Q3

REPORT INFORMATION
  Report Type: Spontaneous
  Country: US (occurrence: US)
  Receive Date: 20120904
  Receipt Date: 20130917
  Transmission Date: 20140515
  Serious: No
  Sender: FDA-Public Use
  Company Number: US-B.I. PHARMACEUTICALS,INC./RIDGEFIELD-2012-BP-21036BP

PATIENT
  Age: 69 Year
  Sex: Male
  Weight: 92 kg

DRUGS (14)
  1. PRADAXA [Suspect]
     Indication: ATRIAL FIBRILLATION
     Dosage: 300 MG
     Route: 048
     Dates: start: 2011
  2. FLECAINIDE [Concomitant]
     Indication: HEART RATE IRREGULAR
     Dosage: 100 MG
     Route: 048
     Dates: start: 201208
  3. METFORMIN [Concomitant]
     Indication: DIABETES MELLITUS
     Dosage: 1000 MG
     Route: 048
     Dates: start: 20120806
  4. METFORMIN [Concomitant]
     Indication: TYPE 2 DIABETES MELLITUS
     Dosage: 1000 MG
     Route: 048
     Dates: start: 201212
  5. SIMVASTATIN [Concomitant]
     Indication: BLOOD CHOLESTEROL
     Dosage: 20 MG
     Route: 048
     Dates: start: 2009
  6. LOVAZA [Concomitant]
     Indication: FACIOSCAPULOHUMERAL MUSCULAR DYSTROPHY
     Dosage: 2 G
     Route: 048
     Dates: start: 2010
  7. BYSTOLIC [Concomitant]
     Indication: BLOOD PRESSURE
     Dosage: 5 MG
     Route: 048
     Dates: start: 20120814
  8. VIT D3 [Concomitant]
     Indication: VITAMIN D DEFICIENCY
     Dosage: 2000 U
     Route: 048
     Dates: start: 201206
  9. PROBIOTIC [Concomitant]
     Indication: SUPPLEMENTATION THERAPY
     Route: 048
  10. ATORVASTATIN [Concomitant]
     Indication: BLOOD CHOLESTEROL INCREASED
     Dosage: 10 MG
     Route: 048
     Dates: start: 2008
  11. LOSARTAN [Concomitant]
     Indication: HYPERTENSION
     Dosage: 100 MG
     Route: 048
     Dates: start: 201302
  12. OMEGA 3 WITH VITAMIN D [Concomitant]
     Dosage: DOSE STRENGHT: 1000 MG/1000 IU; DAILY DOSE: 1000 MG/1000 IU
     Route: 048
     Dates: start: 201302
  13. VITAMIN D [Concomitant]
     Indication: VITAMIN D DEFICIENCY
     Dosage: 1 ANZ
     Route: 048
     Dates: start: 201302
  14. CO Q-10 [Concomitant]
     Dosage: 2 ANZ
     Route: 048
     Dates: start: 201302

REACTIONS (4)
  - Local swelling [Not Recovered/Not Resolved]
  - Joint swelling [Not Recovered/Not Resolved]
  - Pain in extremity [Not Recovered/Not Resolved]
  - Alopecia [Not Recovered/Not Resolved]
